FAERS Safety Report 8965361 (Version 2)
Quarter: 2013Q2

REPORT INFORMATION
  Report Type: Spontaneous
  Country: CA (occurrence: CA)
  Receive Date: 20121213
  Receipt Date: 20130417
  Transmission Date: 20140414
  Serious: Yes (Death, Hospitalization)
  Sender: FDA-Public Use
  Company Number: CA-ELI_LILLY_AND_COMPANY-CA201212002271

PATIENT
  Sex: Female

DRUGS (1)
  1. XIGRIS [Suspect]
     Dosage: UNK

REACTIONS (3)
  - Fungal infection [Fatal]
  - Coma [Unknown]
  - Drug administration error [Not Recovered/Not Resolved]
